FAERS Safety Report 5234826-1 (Version None)
Quarter: 2007Q1

REPORT INFORMATION
  Report Type: 
  Country: None (occurrence: None)
  Receive Date: 20070209
  Receipt Date: 20070130
  Transmission Date: 20070707
  Serious: Yes (Other)
  Sender: FDA-Public Use
  Company Number: JP-PFIZER INC-2007004822

PATIENT
  Sex: Female
  Weight: 52.6 kg

DRUGS (3)
  1. NORVASC [Suspect]
     Indication: HYPERTENSION
     Dosage: DAILY DOSE:5MG
     Route: 048
     Dates: start: 20051028, end: 20061219
  2. LAFUTIDINE [Suspect]
     Dosage: TEXT:2 TABLETS
     Route: 048
     Dates: start: 20060210, end: 20061219
  3. BLOPRESS [Concomitant]
     Indication: HYPERTENSION
     Dosage: DAILY DOSE:8MG
     Route: 048

REACTIONS (1)
  - PARKINSONISM [None]
